FAERS Safety Report 6623493-8 (Version None)
Quarter: 2010Q1

REPORT INFORMATION
  Report Type: 
  Country: None (occurrence: None)
  Receive Date: 20100223
  Receipt Date: 20091109
  Transmission Date: 20100710
  Serious: No
  Sender: FDA-Public Use
  Company Number: 8053936

PATIENT
  Sex: Female

DRUGS (6)
  1. CERTOLIZUMAB PEGOL (UCB, INC) [Suspect]
     Indication: CROHN'S DISEASE
     Dosage: 400 MG, DOSE FREQ.: ONCE MONTHLY SUBCUTANEOUS
     Route: 058
     Dates: start: 20090414, end: 20091027
  2. AZATHIOPRINE [Concomitant]
  3. LEXAPRO [Concomitant]
  4. PRILOSEC [Concomitant]
  5. DOXYCYCLINE [Concomitant]
  6. LEVORA 0.15/30-28 [Concomitant]

REACTIONS (5)
  - ALOPECIA [None]
  - ARTHRALGIA [None]
  - MUSCULOSKELETAL STIFFNESS [None]
  - OEDEMA PERIPHERAL [None]
  - WEIGHT INCREASED [None]
